FAERS Safety Report 5297902-3 (Version None)
Quarter: 2007Q2

REPORT INFORMATION
  Report Type: 
  Country: None (occurrence: None)
  Receive Date: 20070416
  Receipt Date: 20070403
  Transmission Date: 20071010
  Serious: Yes (Hospitalization, Other)
  Sender: FDA-Public Use
  Company Number: PHEH2007US04505

PATIENT
  Age: 64 Year
  Sex: Female
  Weight: 87.074 kg

DRUGS (16)
  1. COMBIPATCH [Suspect]
     Indication: MENOPAUSE
     Dosage: .05/.14 (UNITS UNSPECIFIED) TWICE WEEKLY
     Dates: start: 19990926, end: 20001106
  2. CLIMARA [Suspect]
     Indication: MENOPAUSE
     Dosage: UNK, QD
     Route: 062
     Dates: start: 20001023
  3. PREMARIN [Suspect]
     Indication: MENOPAUSE
     Dates: start: 20000106
  4. PROVERA [Suspect]
     Indication: MENOPAUSE
     Dosage: 5 MG, QD
     Route: 048
     Dates: start: 19950812, end: 19971208
  5. PROVERA [Suspect]
     Dosage: 2.5 MG, INTERCHANGED W/ 5MG BASED ON SX
  6. PROVERA [Suspect]
     Dates: start: 19930101, end: 19970101
  7. PREMARIN [Suspect]
     Indication: MENOPAUSE
     Dates: start: 19900101, end: 19920101
  8. PREMARIN [Suspect]
     Dosage: 0.9 MG, QD
     Route: 048
     Dates: start: 19950912, end: 19971207
  9. PREMARIN [Suspect]
     Dosage: 0.3 MG INTERCHANGED BASED ON SX
  10. PREMARIN [Suspect]
     Dates: start: 19900101, end: 19920101
  11. PREMARIN [Suspect]
     Dates: start: 19900101, end: 19920101
  12. SYNTHROID [Concomitant]
     Indication: HYPOTHYROIDISM
     Dosage: 0.125 MG, QD
     Route: 048
     Dates: start: 19890101
  13. ESTROGEN NOS [Suspect]
     Indication: MENOPAUSE
     Route: 062
  14. PREMPRO [Suspect]
     Indication: MENOPAUSE
     Dosage: UNK, QD
     Route: 048
     Dates: start: 19960515
  15. PREMPRO [Suspect]
     Dosage: .625/2.5 MG  DAILOY
     Route: 048
     Dates: start: 20001211, end: 20020507
  16. NICODERM [Concomitant]

REACTIONS (29)
  - APPLICATION SITE HYPERSENSITIVITY [None]
  - BLOOD TRIGLYCERIDES INCREASED [None]
  - BREAST CANCER STAGE I [None]
  - BREAST CYST [None]
  - BREAST MICROCALCIFICATION [None]
  - CATARACT [None]
  - CATARACT OPERATION [None]
  - CERVICAL DYSPLASIA [None]
  - COLITIS ISCHAEMIC [None]
  - DEPRESSION [None]
  - ENDOMETRIAL DISORDER [None]
  - FEELING ABNORMAL [None]
  - HIP ARTHROPLASTY [None]
  - HOT FLUSH [None]
  - HYPERCHOLESTEROLAEMIA [None]
  - HYPOAESTHESIA [None]
  - INJURY [None]
  - LENS IMPLANT [None]
  - LIPIDS INCREASED [None]
  - LYMPHADENECTOMY [None]
  - MACROCYTOSIS [None]
  - MALIGNANT BREAST LUMP REMOVAL [None]
  - MENTAL DISORDER [None]
  - OSTEOARTHRITIS [None]
  - PAIN [None]
  - RADIATION INJURY [None]
  - RADIOTHERAPY [None]
  - SMEAR CERVIX ABNORMAL [None]
  - UTERINE LEIOMYOMA [None]
